FAERS Safety Report 23936845 (Version 1)
Quarter: 2024Q2

REPORT INFORMATION
  Report Type: Spontaneous
  Country: US (occurrence: US)
  Receive Date: 20240604
  Receipt Date: 20240604
  Transmission Date: 20240716
  Serious: No
  Sender: FDA-Public Use
  Company Number: US-SEPTODONT-2023018248

PATIENT
  Age: 26 Year
  Sex: Female

DRUGS (1)
  1. CARBOCAINE [Suspect]
     Active Substance: MEPIVACAINE HYDROCHLORIDE
     Indication: Dental local anaesthesia
     Route: 004
     Dates: start: 20231220, end: 20231220

REACTIONS (3)
  - Drug ineffective [Unknown]
  - Muscle spasms [Unknown]
  - Trismus [Unknown]

NARRATIVE: CASE EVENT DATE: 20231220
